FAERS Safety Report 7193090-7 (Version None)
Quarter: 2010Q4

REPORT INFORMATION
  Report Type: 
  Country: None (occurrence: None)
  Receive Date: 20101223
  Receipt Date: 20101215
  Transmission Date: 20110411
  Serious: Yes (Other)
  Sender: FDA-Public Use
  Company Number: CA-MERCK-1012USA02487

PATIENT
  Sex: Female

DRUGS (3)
  1. HYZAAR [Suspect]
     Route: 048
  2. ASPIRIN [Suspect]
     Route: 065
  3. LOPRESSOR [Suspect]
     Route: 065

REACTIONS (3)
  - DRUG DOSE OMISSION [None]
  - HEART RATE INCREASED [None]
  - PALPITATIONS [None]
